FAERS Safety Report 24022804 (Version 2)
Quarter: 2024Q3

REPORT INFORMATION
  Report Type: Report from Study
  Country: US (occurrence: US)
  Receive Date: 20240627
  Receipt Date: 20240710
  Transmission Date: 20241017
  Serious: No
  Sender: ROCHE
  Company Number: US-ROCHE-3544320

PATIENT
  Age: 72 Year
  Sex: Male
  Weight: 102.51 kg

DRUGS (10)
  1. VABYSMO [Suspect]
     Active Substance: FARICIMAB\FARICIMAB-SVOA
     Indication: Neovascular age-related macular degeneration
     Dosage: IN RIGHT EYE
     Route: 065
     Dates: start: 202301
  2. AVASTIN [Suspect]
     Active Substance: BEVACIZUMAB
     Indication: Neovascular age-related macular degeneration
     Dosage: EVERY 5 TO 6 WEEKS, CLOSER TO 5 WEEKS. ;ONGOING: NO
     Route: 065
     Dates: start: 202205, end: 202212
  3. LISINOPRIL [Concomitant]
     Active Substance: LISINOPRIL
     Indication: Blood pressure measurement
     Dosage: ORAL TABLET 12.5 MG ONCE A DAY, 2 TABLETS A DAY, IN THE MORNING ;ONGOING: YES
  4. OMEPRAZOLE [Concomitant]
     Active Substance: OMEPRAZOLE
     Dosage: ORAL CAPSULE 20 MG ONCE A DAY
  5. MINERALS\VITAMINS [Concomitant]
     Active Substance: MINERALS\VITAMINS
     Dosage: ORAL GEL CAP TWICE A DAY
     Dates: start: 202205
  6. FLOVENT [Concomitant]
     Active Substance: FLUTICASONE PROPIONATE
     Indication: Asthma
     Dosage: TWICE A DAY
     Route: 055
  7. VITAMIN B12 [Concomitant]
     Active Substance: CYANOCOBALAMIN
     Dosage: ORAL 12000 UG ONCE A DAY
  8. GINKGO [Concomitant]
     Active Substance: GINKGO
     Dosage: ORAL 125 UG ONCE A DAY
  9. VITAMIN C [Concomitant]
     Active Substance: ASCORBIC ACID
     Dosage: ORAL 1000 MG ONCE A DAY
  10. VITAMIN D3 [Concomitant]
     Active Substance: CHOLECALCIFEROL
     Dosage: ORAL 125 UG ONCE A DAY

REACTIONS (4)
  - Off label use [Unknown]
  - Off label use [Unknown]
  - Eye haemorrhage [Recovered/Resolved]
  - Impaired healing [Recovered/Resolved]

NARRATIVE: CASE EVENT DATE: 20220501
